FAERS Safety Report 21556533 (Version 1)
Quarter: 2022Q4

REPORT INFORMATION
  Report Type: Spontaneous
  Country: US (occurrence: US)
  Receive Date: 20221104
  Receipt Date: 20221104
  Transmission Date: 20230113
  Serious: No
  Sender: FDA-Public Use
  Company Number: US-TEVA-2022-US-2818972

PATIENT
  Age: 74 Year
  Sex: Female

DRUGS (1)
  1. LIDOCAINE [Suspect]
     Active Substance: LIDOCAINE
     Indication: Pain in extremity
     Dosage: STRENGTH: 5 %
     Dates: start: 20221017

REACTIONS (3)
  - Drug ineffective [Unknown]
  - Product adhesion issue [Unknown]
  - Product quality issue [Unknown]

NARRATIVE: CASE EVENT DATE: 20221017
